FAERS Safety Report 14624470 (Version 1)
Quarter: 2018Q1

REPORT INFORMATION
  Report Type: Spontaneous
  Country: AE (occurrence: AE)
  Receive Date: 20180310
  Receipt Date: 20180310
  Transmission Date: 20180509
  Serious: Yes (Hospitalization)
  Sender: FDA-Public Use
  Company Number: None

PATIENT
  Age: 41 Year
  Sex: Female
  Weight: 53 kg

DRUGS (6)
  1. YAZ [Suspect]
     Active Substance: DROSPIRENONE\ETHINYL ESTRADIOL
     Indication: PREMENSTRUAL SYNDROME
     Dosage: ?          QUANTITY:1 TABLET(S);?
     Route: 048
  2. VITAMIN D [Concomitant]
     Active Substance: CHOLECALCIFEROL
  3. YAZ [Suspect]
     Active Substance: DROSPIRENONE\ETHINYL ESTRADIOL
     Indication: HEADACHE
     Dosage: ?          QUANTITY:1 TABLET(S);?
     Route: 048
  4. PROBIOTICS [Concomitant]
     Active Substance: PROBIOTICS NOS
  5. YAZ [Suspect]
     Active Substance: DROSPIRENONE\ETHINYL ESTRADIOL
     Indication: CONTRACEPTION
     Dosage: ?          QUANTITY:1 TABLET(S);?
     Route: 048
  6. MONOLAURIN [Concomitant]

REACTIONS (11)
  - Therapy cessation [None]
  - Fungal infection [None]
  - Large intestinal ulcer [None]
  - Depression [None]
  - Feeling abnormal [None]
  - Abdominal pain [None]
  - Vulvovaginal pruritus [None]
  - Vulvovaginal mycotic infection [None]
  - Haematochezia [None]
  - Sexual dysfunction [None]
  - Vulvovaginal dryness [None]

NARRATIVE: CASE EVENT DATE: 20171213
